FAERS Safety Report 6651812-5 (Version None)
Quarter: 2010Q1

REPORT INFORMATION
  Report Type: 
  Country: None (occurrence: None)
  Receive Date: 20100325
  Receipt Date: 20100317
  Transmission Date: 20100710
  Serious: Yes (Life-Threatening, Hospitalization, Other)
  Sender: FDA-Public Use
  Company Number: GB-MILLENNIUM PHARMACEUTICALS, INC.-2010-01189

PATIENT

DRUGS (3)
  1. VELCADE [Suspect]
     Indication: MULTIPLE MYELOMA
     Dosage: 1.0 MG/M2, UNK
     Dates: start: 20080101
  2. DEXAMETHASONE [Suspect]
     Indication: MULTIPLE MYELOMA
  3. FLOXACILLIN SODIUM [Concomitant]
     Indication: SPLINTER

REACTIONS (3)
  - HEPATITIS [None]
  - NECROTISING FASCIITIS [None]
  - SALMONELLOSIS [None]
